FAERS Safety Report 10228936 (Version 1)
Quarter: 2014Q2

REPORT INFORMATION
  Report Type: Report from Study
  Country: CA (occurrence: CA)
  Receive Date: 20140610
  Receipt Date: 20140610
  Transmission Date: 20141212
  Serious: Yes (Hospitalization, Disabling)
  Sender: FDA-Public Use
  Company Number: CA-GILEAD-2014-0105052

PATIENT
  Age: 58 Year
  Sex: Female
  Weight: 77.98 kg

DRUGS (1)
  1. TENOFOVIR DISOPROXIL FUMARATE [Suspect]
     Indication: HEPATITIS B
     Dosage: 300 MG, UNK
     Route: 048
     Dates: start: 20110425

REACTIONS (4)
  - Road traffic accident [Unknown]
  - Sternal fracture [Unknown]
  - Hypoaesthesia [Unknown]
  - Neck pain [Unknown]
